FAERS Safety Report 9936831 (Version 1)
Quarter: 2014Q1

REPORT INFORMATION
  Report Type: Spontaneous
  Country: GB (occurrence: None)
  Receive Date: 20140110
  Receipt Date: 20140110
  Transmission Date: 20141002
  Serious: Yes (Hospitalization)
  Sender: FDA-Public Use
  Company Number: E2B_00001524

PATIENT
  Sex: Male

DRUGS (1)
  1. LEVETRIACETAM [Suspect]
     Indication: EPILEPSY

REACTIONS (3)
  - Drug ineffective [None]
  - Convulsion [None]
  - Product substitution issue [None]
